FAERS Safety Report 19666576 (Version 20)
Quarter: 2023Q1

REPORT INFORMATION
  Report Type: Report from Study
  Country: JP (occurrence: JP)
  Receive Date: 20210806
  Receipt Date: 20230320
  Transmission Date: 20230418
  Serious: Yes (Hospitalization, Other)
  Sender: FDA-Public Use
  Company Number: JP-BRISTOL-MYERS SQUIBB COMPANY-BMS-2021-076894

PATIENT
  Age: 8 Decade
  Sex: Male
  Weight: 50.3 kg

DRUGS (8)
  1. YERVOY [Suspect]
     Active Substance: IPILIMUMAB
     Indication: Non-small cell lung cancer recurrent
     Route: 041
     Dates: start: 20210518, end: 20210518
  2. YERVOY [Suspect]
     Active Substance: IPILIMUMAB
     Route: 041
     Dates: end: 20220218
  3. OPDIVO [Suspect]
     Active Substance: NIVOLUMAB
     Indication: Non-small cell lung cancer recurrent
     Route: 041
     Dates: start: 20210518, end: 20210609
  4. OPDIVO [Suspect]
     Active Substance: NIVOLUMAB
     Route: 041
     Dates: start: 202106, end: 20220311
  5. TAXOL [Suspect]
     Active Substance: PACLITAXEL
     Indication: Non-small cell lung cancer recurrent
     Dates: start: 20210518, end: 20210609
  6. CARBOPLATIN [Suspect]
     Active Substance: CARBOPLATIN
     Indication: Non-small cell lung cancer recurrent
     Dates: start: 20210518, end: 20210609
  7. CARBOPLATIN [Suspect]
     Active Substance: CARBOPLATIN
     Dates: start: 202106
  8. CARBOPLATIN [Suspect]
     Active Substance: CARBOPLATIN
     Dates: start: 20220407, end: 20220729

REACTIONS (9)
  - Haematochezia [Recovering/Resolving]
  - Diarrhoea [Recovering/Resolving]
  - Neutrophil count decreased [Unknown]
  - Decreased appetite [Recovered/Resolved]
  - White blood cell count decreased [Unknown]
  - Anaemia [Unknown]
  - Platelet count decreased [Unknown]
  - Febrile neutropenia [Recovered/Resolved]
  - Non-small cell lung cancer [Unknown]

NARRATIVE: CASE EVENT DATE: 20210618
